FAERS Safety Report 10968761 (Version 9)
Quarter: 2018Q1

REPORT INFORMATION
  Report Type: Spontaneous
  Country: CA (occurrence: CA)
  Receive Date: 20150331
  Receipt Date: 20180323
  Transmission Date: 20180508
  Serious: Yes (Hospitalization, Other)
  Sender: FDA-Public Use
  Company Number: CA-ROCHE-1557641

PATIENT
  Age: 39 Year
  Sex: Female

DRUGS (12)
  1. XOLAIR [Suspect]
     Active Substance: OMALIZUMAB
     Dosage: UNK
     Route: 058
     Dates: start: 20170503, end: 2017
  2. PREDNISONE. [Suspect]
     Active Substance: PREDNISONE
     Indication: PRODUCT USED FOR UNKNOWN INDICATION
     Dosage: 1 DF, QD
     Route: 065
     Dates: start: 20150313
  3. PREDNISONE. [Suspect]
     Active Substance: PREDNISONE
     Dosage: 0.5 DF, QD
     Route: 065
     Dates: start: 20150318
  4. ULTIBRO BREEZHALER [Suspect]
     Active Substance: GLYCOPYRRONIUM\INDACATEROL
     Indication: PRODUCT USED FOR UNKNOWN INDICATION
     Route: 065
  5. BREO ELLIPTA [Concomitant]
     Active Substance: FLUTICASONE FUROATE\VILANTEROL TRIFENATATE
     Indication: PRODUCT USED FOR UNKNOWN INDICATION
     Route: 065
  6. SALBUTAMOL [Concomitant]
     Active Substance: ALBUTEROL
     Indication: PRODUCT USED FOR UNKNOWN INDICATION
     Route: 065
  7. CETIRIZINE [Concomitant]
     Active Substance: CETIRIZINE HYDROCHLORIDE
     Indication: PRODUCT USED FOR UNKNOWN INDICATION
     Route: 065
  8. SINGULAIR [Concomitant]
     Active Substance: MONTELUKAST SODIUM
     Indication: PRODUCT USED FOR UNKNOWN INDICATION
     Route: 065
  9. LORAZEPAM. [Concomitant]
     Active Substance: LORAZEPAM
     Indication: PRODUCT USED FOR UNKNOWN INDICATION
     Route: 065
  10. RABEPRAZOLE [Concomitant]
     Active Substance: RABEPRAZOLE
     Indication: PRODUCT USED FOR UNKNOWN INDICATION
     Route: 065
  11. XOLAIR [Suspect]
     Active Substance: OMALIZUMAB
     Indication: ASTHMA
     Route: 058
     Dates: start: 20150303
  12. CYPROTERONE [Concomitant]
     Active Substance: CYPROTERONE
     Indication: PRODUCT USED FOR UNKNOWN INDICATION
     Route: 065

REACTIONS (24)
  - Lung infection [Unknown]
  - Facial pain [Unknown]
  - Productive cough [Unknown]
  - Flank pain [Unknown]
  - Lymphadenopathy [Unknown]
  - Haemoglobin decreased [Unknown]
  - Effusion [Unknown]
  - Pancreatic pseudocyst [Unknown]
  - Pancreatitis acute [Not Recovered/Not Resolved]
  - Pancreatitis necrotising [Unknown]
  - Blood glucose increased [Unknown]
  - Dyspnoea [Unknown]
  - Weight decreased [Unknown]
  - Rhinorrhoea [Unknown]
  - Red cell distribution width increased [Unknown]
  - Rhinitis allergic [Unknown]
  - Forced expiratory volume decreased [Unknown]
  - Headache [Unknown]
  - Hyper IgE syndrome [Unknown]
  - Eye infection [Recovering/Resolving]
  - Wheezing [Unknown]
  - Pain [Unknown]
  - Insomnia [Unknown]
  - Urticaria [Recovered/Resolved]

NARRATIVE: CASE EVENT DATE: 20150313
